FAERS Safety Report 8123843-X (Version None)
Quarter: 2012Q1

REPORT INFORMATION
  Report Type: 
  Country: None (occurrence: None)
  Receive Date: 20120209
  Receipt Date: 20120202
  Transmission Date: 20120608
  Serious: Yes (Hospitalization)
  Sender: FDA-Public Use
  Company Number: US-AMGEN-USASP2012007287

PATIENT
  Age: 59 Year
  Sex: Female

DRUGS (1)
  1. ENBREL [Suspect]
     Indication: RHEUMATOID ARTHRITIS
     Dosage: 50 MG, Q2WK
     Dates: start: 20030101

REACTIONS (9)
  - PAIN [None]
  - MALAISE [None]
  - HEPATIC ENZYME INCREASED [None]
  - PYREXIA [None]
  - CHILLS [None]
  - ARTHRALGIA [None]
  - NEPHROLITHIASIS [None]
  - VOMITING [None]
  - WEIGHT DECREASED [None]
